FAERS Safety Report 5278284-X (Version None)
Quarter: 2007Q1

REPORT INFORMATION
  Report Type: 
  Country: None (occurrence: None)
  Receive Date: 20070322
  Receipt Date: 20070314
  Transmission Date: 20070707
  Serious: Yes (Other)
  Sender: FDA-Public Use
  Company Number: 163-20785-07030847

PATIENT
  Sex: Female

DRUGS (7)
  1. THALOMID [Suspect]
     Indication: MULTIPLE MYELOMA
     Dosage: 150-200MG, 1 IN 1 D, ORAL
     Route: 048
     Dates: start: 20060630
  2. CALCIUM (CALCIUM) [Suspect]
     Indication: DRUG USE FOR UNKNOWN INDICATION
  3. MULTIVITAMIN [Concomitant]
  4. DECADRON [Concomitant]
  5. IRON (IRON) [Concomitant]
  6. FOSAMAX [Concomitant]
  7. VITAMIN D [Concomitant]

REACTIONS (2)
  - ALVEOLITIS ALLERGIC [None]
  - RASH [None]
